FAERS Safety Report 18300811 (Version 1)
Quarter: 2020Q3

REPORT INFORMATION
  Report Type: Other
  Country: CA (occurrence: CA)
  Receive Date: 20200923
  Receipt Date: 20200923
  Transmission Date: 20201103
  Serious: Yes (Hospitalization)
  Sender: FDA-Public Use
  Company Number: CA-APOTEX-2020AP018232

PATIENT
  Age: 24 Year
  Sex: Female

DRUGS (1)
  1. AMOXICILLIN SODIUM/ CLAVULANATE POTASSIUM [Suspect]
     Active Substance: AMOXICILLIN\CLAVULANATE POTASSIUM
     Indication: PYELONEPHRITIS
     Dosage: 1 DOSAGE FORM, BID
     Route: 048

REACTIONS (5)
  - Peripheral swelling [Recovered/Resolved]
  - Rash pruritic [Recovered/Resolved]
  - Rash [Recovered/Resolved]
  - Dyspnoea [Recovered/Resolved]
  - Rash papular [Recovered/Resolved]
